FAERS Safety Report 6810384-2 (Version None)
Quarter: 2010Q2

REPORT INFORMATION
  Report Type: 
  Country: None (occurrence: None)
  Receive Date: 20100630
  Receipt Date: 20100615
  Transmission Date: 20101027
  Serious: Yes (Hospitalization, Other)
  Sender: FDA-Public Use
  Company Number: PHHY2010US39241

PATIENT
  Sex: Male

DRUGS (5)
  1. DIOVAN [Suspect]
     Dosage: 80 MG
  2. DIOVAN [Suspect]
     Dosage: 160 MG
  3. INSULIN [Concomitant]
  4. OXYCODONE HCL [Concomitant]
     Dosage: UNK
  5. IBUPROFEN [Concomitant]

REACTIONS (4)
  - ASTHENIA [None]
  - FATIGUE [None]
  - HERPES ZOSTER [None]
  - NEURALGIA [None]
